FAERS Safety Report 9714796 (Version 1)
Quarter: 2013Q4

REPORT INFORMATION
  Report Type: Spontaneous
  Country: NL (occurrence: NL)
  Receive Date: 20131126
  Receipt Date: 20131126
  Transmission Date: 20140711
  Serious: Yes (Other)
  Sender: FDA-Public Use
  Company Number: NL-ACTAVIS-2013-21077

PATIENT
  Age: 80 Year
  Sex: Female

DRUGS (2)
  1. MICONAZOLE (UNKNOWN) [Suspect]
     Indication: ANAL FUNGAL INFECTION
     Dosage: UNK
     Route: 065
  2. FENPROCOUMON [Interacting]
     Indication: ATRIAL FIBRILLATION
     Dosage: UNK
     Route: 065

REACTIONS (2)
  - International normalised ratio increased [Recovered/Resolved]
  - Drug interaction [Recovered/Resolved]
